FAERS Safety Report 10087857 (Version 1)
Quarter: 2014Q2

REPORT INFORMATION
  Report Type: Spontaneous
  Country: US (occurrence: US)
  Receive Date: 20140418
  Receipt Date: 20140418
  Transmission Date: 20141212
  Serious: No
  Sender: FDA-Public Use
  Company Number: US-PURDUE-USA-2014-0111533

PATIENT
  Sex: Male

DRUGS (3)
  1. OXYCONTIN (NDA 22-272) [Suspect]
     Indication: PRODUCT USED FOR UNKNOWN INDICATION
     Dosage: 80 MG, TID
     Route: 048
  2. OXYCODONE HCL IR CAPSULES [Concomitant]
     Indication: BREAKTHROUGH PAIN
     Dosage: 10 MG, Q4H
     Route: 048
  3. OXYCODONE HCL IR CAPSULES [Concomitant]
     Dosage: 15 MG, Q4H
     Route: 048

REACTIONS (3)
  - Drug withdrawal syndrome [Unknown]
  - Malaise [Unknown]
  - Somnolence [Unknown]
